FAERS Safety Report 6755283-X (Version None)
Quarter: 2010Q2

REPORT INFORMATION
  Report Type: 
  Country: None (occurrence: None)
  Receive Date: 20100528
  Receipt Date: 20100519
  Transmission Date: 20101027
  Serious: Yes (Hospitalization)
  Sender: FDA-Public Use
  Company Number: 2010AL002923

PATIENT
  Age: 36 Year
  Sex: Female

DRUGS (5)
  1. MIRTAZAPINE [Suspect]
     Indication: DEPRESSION
     Dosage: 30 MG;QD
  2. PANTOPRAZOLE [Concomitant]
  3. IRON POLYMALTOSE [Concomitant]
  4. CALCIUM CARBONATE [Concomitant]
  5. ALENDRONIC ACID [Concomitant]

REACTIONS (14)
  - ALANINE AMINOTRANSFERASE INCREASED [None]
  - ASTHENIA [None]
  - BLOOD CALCIUM DECREASED [None]
  - BLOOD IRON DECREASED [None]
  - BUNDLE BRANCH BLOCK LEFT [None]
  - CARDIOMYOPATHY [None]
  - DEPRESSION [None]
  - GASTROOESOPHAGEAL REFLUX DISEASE [None]
  - HYPERMAGNESAEMIA [None]
  - HYPONATRAEMIA [None]
  - HYPOTENSION [None]
  - PANCYTOPENIA [None]
  - PERICARDIAL EFFUSION [None]
  - SUICIDAL IDEATION [None]
